FAERS Safety Report 26099216 (Version 1)
Quarter: 2025Q4

REPORT INFORMATION
  Report Type: Spontaneous
  Country: EU (occurrence: EU)
  Receive Date: 20251128
  Receipt Date: 20251128
  Transmission Date: 20260118
  Serious: Yes (Other)
  Sender: ROCHE
  Company Number: None

PATIENT
  Age: 50 Year
  Sex: Female
  Weight: 76 kg

DRUGS (3)
  1. MYCOPHENOLATE MOFETIL [Suspect]
     Active Substance: MYCOPHENOLATE MOFETIL
     Indication: Systemic sclerosis pulmonary
     Dosage: 2 X PER DAG 1500 MG
     Route: 048
     Dates: start: 20240601, end: 20241015
  2. PLANTAGO OVATA GRANULAAT 3,25G / Brand name not specified [Concomitant]
     Dosage: ZAKJE (GRANULAAT), 3,25 G (GRAM)
     Route: 048
  3. OMEPRAZOLE [Concomitant]
     Active Substance: OMEPRAZOLE
     Dosage: MAAGSAPRESISTENTE CAPSULE, 20 MG (MILLIGRAM)
     Route: 048

REACTIONS (1)
  - Deep vein thrombosis [Unknown]
